FAERS Safety Report 8895565 (Version 1)
Quarter: 2012Q4

REPORT INFORMATION
  Report Type: 
  Country: BR (occurrence: BR)
  Receive Date: 20121108
  Receipt Date: 20121108
  Transmission Date: 20130627
  Serious: Yes (Other)
  Sender: FDA-Public Use
  Company Number: BR-PFIZER INC-2012276246

PATIENT
  Age: 13 Year
  Sex: Female
  Weight: 86 kg

DRUGS (2)
  1. CELEBRA [Suspect]
     Indication: PAIN IN KNEE
     Dosage: 200 mg, 1x/day (one capsule once a day)
     Dates: start: 20120915
  2. ULTRACET [Concomitant]
     Indication: PAIN IN KNEE
     Dosage: 1 tablet, 1x/day
     Dates: start: 20120915

REACTIONS (2)
  - Patella fracture [Unknown]
  - Tendon rupture [Unknown]
